FAERS Safety Report 5376727-4 (Version None)
Quarter: 2007Q2

REPORT INFORMATION
  Report Type: 
  Country: None (occurrence: None)
  Receive Date: 20070629
  Receipt Date: 20070629
  Transmission Date: 20071010
  Serious: Yes (Hospitalization, Other)
  Sender: FDA-Public Use
  Company Number: None

PATIENT
  Sex: Female

DRUGS (1)
  1. ENBREL [Suspect]
     Indication: PSORIASIS
     Dosage: 50MG/ML WEEKLY SUBQ
     Route: 058
     Dates: start: 20070503, end: 20070524

REACTIONS (7)
  - HEAD INJURY [None]
  - INJURY [None]
  - JAW FRACTURE [None]
  - LOSS OF CONSCIOUSNESS [None]
  - SPINAL DISORDER [None]
  - TOOTH FRACTURE [None]
  - WHIPLASH INJURY [None]
